FAERS Safety Report 25760969 (Version 1)
Quarter: 2025Q3

REPORT INFORMATION
  Report Type: Spontaneous
  Country: US (occurrence: None)
  Receive Date: 20250903
  Receipt Date: 20250903
  Transmission Date: 20251021
  Serious: Yes (Hospitalization)
  Sender: FDA-CTU
  Company Number: None

PATIENT
  Age: 39 Year
  Sex: Female

DRUGS (1)
  1. BIMZELX [Suspect]
     Active Substance: BIMEKIZUMAB-BKZX

REACTIONS (7)
  - Chest pain [None]
  - Chest discomfort [None]
  - Throat tightness [None]
  - Blister [None]
  - Pruritus [None]
  - Rash [None]
  - Acne [None]

NARRATIVE: CASE EVENT DATE: 20050822
